FAERS Safety Report 11419912 (Version 1)
Quarter: 2015Q3

REPORT INFORMATION
  Report Type: Spontaneous
  Country: BR (occurrence: BR)
  Receive Date: 20150826
  Receipt Date: 20150826
  Transmission Date: 20151125
  Serious: Yes (Other)
  Sender: FDA-Public Use
  Company Number: BR-PFIZER INC-2015279921

PATIENT
  Age: 68 Year
  Sex: Female
  Weight: 74 kg

DRUGS (5)
  1. ATACAND HCT [Suspect]
     Active Substance: CANDESARTAN CILEXETIL\HYDROCHLOROTHIAZIDE
     Indication: HYPERTENSION
     Dosage: 16/12.5 MG, DAILY
     Route: 048
     Dates: end: 2012
  2. ATENOLOL. [Suspect]
     Active Substance: ATENOLOL
     Indication: HYPERTENSION
     Dosage: 25 MG, 1X/DAY, AT NIGHT
     Route: 048
  3. LEXOTAN [Concomitant]
     Active Substance: BROMAZEPAM
     Indication: PANIC DISORDER
     Dosage: 3 MG,1X/DAY
     Route: 048
     Dates: start: 2007
  4. ATACAND [Suspect]
     Active Substance: CANDESARTAN CILEXETIL
     Indication: HYPERTENSION
     Dosage: 16 MG,1X/DAY
     Route: 048
     Dates: start: 2012
  5. AMYTRIL [Concomitant]
     Active Substance: AMITRIPTYLINE HYDROCHLORIDE
     Indication: PANIC DISORDER
     Dosage: 25 MG,1X/DAY
     Route: 048
     Dates: start: 2007

REACTIONS (5)
  - Panic disorder [Recovered/Resolved]
  - Musculoskeletal pain [Recovered/Resolved]
  - Tendon rupture [Recovered/Resolved with Sequelae]
  - Muscle spasms [Recovered/Resolved]
  - Fall [Recovered/Resolved]

NARRATIVE: CASE EVENT DATE: 2007
